FAERS Safety Report 7505217-5 (Version None)
Quarter: 2011Q2

REPORT INFORMATION
  Report Type: 
  Country: None (occurrence: None)
  Receive Date: 20110526
  Receipt Date: 20110520
  Transmission Date: 20111010
  Serious: Yes (Other)
  Sender: FDA-Public Use
  Company Number: US-PFIZER INC-2011004497

PATIENT
  Sex: Female

DRUGS (1)
  1. NEURONTIN [Suspect]
     Indication: PAIN IN EXTREMITY
     Dosage: 600 MG, UNK

REACTIONS (11)
  - GAIT DISTURBANCE [None]
  - DISTURBANCE IN ATTENTION [None]
  - DRUG INEFFECTIVE [None]
  - OEDEMA PERIPHERAL [None]
  - JOINT SWELLING [None]
  - DRY MOUTH [None]
  - DIZZINESS [None]
  - WEIGHT INCREASED [None]
  - VISION BLURRED [None]
  - SOMNOLENCE [None]
  - DYSKINESIA [None]
